FAERS Safety Report 6923384-9 (Version None)
Quarter: 2010Q3

REPORT INFORMATION
  Report Type: 
  Country: None (occurrence: None)
  Receive Date: 20100813
  Receipt Date: 20100811
  Transmission Date: 20110219
  Serious: Yes (Hospitalization)
  Sender: FDA-Public Use
  Company Number: US-MERCK-1007USA02083

PATIENT
  Age: 43 Year
  Sex: Female

DRUGS (7)
  1. MAXALT [Suspect]
     Indication: MIGRAINE
     Dosage: TWICE A DAY WHEN MIGRAINES ARE BAD
     Route: 048
     Dates: start: 20000101
  2. REMERON [Concomitant]
     Route: 065
  3. HYDROCHLOROTHIAZIDE [Concomitant]
     Route: 065
  4. NEXIUM [Concomitant]
     Route: 065
  5. TOPAMAX [Concomitant]
     Route: 065
  6. LUNESTA [Concomitant]
     Route: 065
  7. PRISTIQ [Concomitant]
     Route: 065

REACTIONS (3)
  - DRUG EFFECT DECREASED [None]
  - MIGRAINE [None]
  - OFF LABEL USE [None]
